FAERS Safety Report 7603162-8 (Version None)
Quarter: 2011Q3

REPORT INFORMATION
  Report Type: 
  Country: None (occurrence: None)
  Receive Date: 20110712
  Receipt Date: 20110706
  Transmission Date: 20111222
  Serious: Yes (Other)
  Sender: FDA-Public Use
  Company Number: CA-SANOFI-AVENTIS-2011SA020760

PATIENT
  Age: 64 Year
  Sex: Male
  Weight: 70.5 kg

DRUGS (31)
  1. INVESTIGATIONAL DRUG [Suspect]
     Route: 042
     Dates: start: 20110221, end: 20110221
  2. ESOMEPRAZOLE MAGNESIUM [Concomitant]
     Indication: NAUSEA
     Route: 048
     Dates: start: 20110210, end: 20110219
  3. MAGNESIUM [Concomitant]
     Indication: PROSTATE CANCER
     Route: 048
     Dates: start: 20100201
  4. ACETAMINOPHEN [Concomitant]
     Indication: CHEST PAIN
     Dosage: 650 MG EVERY 4 TO 6 HOURS AS NEEDED
     Route: 048
     Dates: start: 20110216, end: 20110223
  5. PANTOPRAZOLE [Concomitant]
     Indication: NAUSEA
     Route: 048
     Dates: start: 20110220
  6. DEXAMETHASONE [Concomitant]
     Indication: PREMEDICATION
     Route: 048
     Dates: start: 20110223, end: 20110225
  7. FISH OIL [Concomitant]
     Indication: ROUTINE HEALTH MAINTENANCE
     Dosage: 1 IN 1 DAY
     Route: 048
     Dates: start: 20100201
  8. ACETAMINOPHEN [Concomitant]
     Indication: PROPHYLAXIS
     Dosage: 650 MG EVERY 4 TO 6 HOURS AS NEEDED
     Route: 048
     Dates: start: 20110216, end: 20110223
  9. DEXAMETHASONE [Concomitant]
     Indication: PROPHYLAXIS
     Route: 048
     Dates: start: 20110223, end: 20110225
  10. ERGOCALCIFEROL [Concomitant]
     Dosage: DOSE:2000 UNIT(S)
     Route: 048
     Dates: start: 20100201
  11. ESOMEPRAZOLE MAGNESIUM [Concomitant]
     Route: 048
     Dates: start: 20110210, end: 20110219
  12. TADALAFIL [Concomitant]
     Indication: ERECTILE DYSFUNCTION
     Route: 048
     Dates: start: 20070401
  13. DOCETAXEL [Suspect]
     Indication: PROSTATE CANCER
     Route: 041
     Dates: start: 20110224, end: 20110224
  14. INVESTIGATIONAL DRUG [Suspect]
     Indication: PROSTATE CANCER
     Route: 042
     Dates: start: 20110216, end: 20110216
  15. DIOVOL [Concomitant]
     Indication: NAUSEA
     Dosage: 1 TO 2 TABLETS, AS REQUIRED
     Route: 048
     Dates: start: 20110101
  16. GLUTAMIC ACID [Concomitant]
     Route: 048
     Dates: start: 20100201
  17. HYDROCHLOROTHIAZIDE [Concomitant]
     Indication: HYPERTENSION
     Route: 048
     Dates: start: 20110201, end: 20110309
  18. ACETAMINOPHEN [Concomitant]
     Dates: start: 20110224
  19. DIPHENHYDRAMINE HYDROCHLORIDE [Concomitant]
     Indication: RASH
     Dosage: 25 TO 50 MG EVERY 4 HOURS AS NEEDED
     Route: 048
     Dates: start: 20110220, end: 20110223
  20. CALCIUM CARBONATE [Concomitant]
     Indication: PROSTATE CANCER
     Route: 048
     Dates: start: 20100201
  21. ACETAMINOPHEN [Concomitant]
     Dates: start: 20110224
  22. ALL OTHER THERAPEUTIC PRODUCTS [Concomitant]
     Dates: start: 20070101
  23. DOCETAXEL [Suspect]
     Route: 041
     Dates: start: 20110224, end: 20110224
  24. ACETAMINOPHEN [Concomitant]
     Dates: start: 20110224
  25. PANTOPRAZOLE [Concomitant]
     Route: 048
     Dates: start: 20110220
  26. INVESTIGATIONAL DRUG [Suspect]
     Route: 042
     Dates: start: 20110224, end: 20110224
  27. PREDNISONE [Suspect]
     Indication: PROSTATE CANCER
     Route: 048
     Dates: start: 20110224
  28. GOSERELIN [Concomitant]
     Indication: PROSTATE CANCER
  29. METOCLOPRAMIDE HYDROCHLORIDE [Concomitant]
     Indication: NAUSEA
  30. ACETAMINOPHEN [Concomitant]
     Indication: PREMEDICATION
     Dosage: 650 MG EVERY 4 TO 6 HOURS AS NEEDED
     Route: 048
     Dates: start: 20110216, end: 20110223
  31. ZOLEDRONIC ACID [Concomitant]
     Dates: start: 20110124

REACTIONS (8)
  - HYPOAESTHESIA [None]
  - VISUAL IMPAIRMENT [None]
  - CAROTID ARTERY STENOSIS [None]
  - VISUAL FIELD DEFECT [None]
  - LACUNAR INFARCTION [None]
  - BALANCE DISORDER [None]
  - CEREBRAL ISCHAEMIA [None]
  - NAUSEA [None]
